FAERS Safety Report 8015402-4 (Version None)
Quarter: 2011Q4

REPORT INFORMATION
  Report Type: 
  Country: None (occurrence: None)
  Receive Date: 20111230
  Receipt Date: 20111228
  Transmission Date: 20120403
  Serious: Yes (Death, Hospitalization, Other)
  Sender: FDA-Public Use
  Company Number: US-ASTELLAS-2011US007078

PATIENT
  Sex: Male
  Weight: 61 kg

DRUGS (55)
  1. DASATINIB [Suspect]
     Dosage: 20 MG, UID/QD
     Route: 048
     Dates: start: 20110514, end: 20111129
  2. DASATINIB [Suspect]
     Dosage: 20 MG, UID/QD
     Route: 048
  3. COMPAZINE [Concomitant]
     Indication: NAUSEA
     Dosage: 10 MG, Q6 HOURS, PRN
     Route: 048
  4. COMPAZINE [Concomitant]
     Indication: VOMITING
  5. NASONEX [Concomitant]
     Indication: ALLERGY PROPHYLAXIS
     Dosage: 2 DF, BID, PRN
     Route: 048
  6. SENNOSIDES DOCUSATE SODIUM [Concomitant]
     Indication: PRODUCT USED FOR UNKNOWN INDICATION
     Dosage: 3 DF, BID
     Route: 048
  7. SENOKOT [Concomitant]
     Indication: CONSTIPATION
     Dosage: 3 DF, BID
     Route: 048
  8. ASPIRIN [Concomitant]
     Indication: PROPHYLAXIS
     Dosage: 81 MG, UID/QD
     Route: 048
  9. OAT BRAN [Concomitant]
     Indication: VITAMIN SUPPLEMENTATION
     Dosage: 2 DF, UID/QD
     Route: 048
  10. SODIUM CHLORIDE [Concomitant]
     Dosage: 10 ML, UID/QD
     Route: 042
  11. AMBIEN [Concomitant]
     Indication: SLEEP DISORDER
     Dosage: 5-10 MG, QHS, PRN
     Route: 048
  12. MORPHINE SULFATE [Concomitant]
     Indication: PAIN
     Dosage: 7.5-15 MG Q4HRS, PRN
     Route: 048
  13. LOVENOX [Concomitant]
     Indication: THROMBOSIS
     Dosage: 60 MG, BID
     Route: 058
  14. ERLOTINIB HYDROCHLORIDE [Suspect]
     Dosage: 150 MG, UID/QD
     Route: 048
  15. DASATINIB [Suspect]
     Dosage: 50 MG, UID/QD
     Route: 048
  16. ACETAMINOPHEN AND HYDROCODONE BITARTRATE [Concomitant]
     Indication: PAIN
     Dosage: 1 DF, Q6 HOURS
     Route: 048
  17. DOCUSATE SODIUM W/SENNA [Concomitant]
     Indication: CONSTIPATION
     Dosage: 2 DF, BID, PRN
     Route: 048
  18. ZOLPIDEM [Concomitant]
     Indication: SLEEP DISORDER
     Dosage: 5 MG, 1-2 DF QHS, PRN
     Route: 048
  19. GLUCOSAMINE COMPLEX [Concomitant]
     Indication: VITAMIN SUPPLEMENTATION
     Dosage: 2 DF, BID
     Route: 048
  20. NALOXONE [Concomitant]
     Indication: PRODUCT USED FOR UNKNOWN INDICATION
     Dosage: 0.4 MG, PRN
     Route: 042
  21. XOPENEX [Concomitant]
     Indication: DYSPNOEA
     Dosage: 1.25 MG, Q6 HOURS
     Route: 055
  22. ATIVAN [Concomitant]
     Indication: ANXIETY
     Dosage: 1 MG, Q8 HOURS, PRN
     Route: 048
  23. DASATINIB [Suspect]
     Dosage: 20 MG, UID/QD
     Route: 048
  24. IPRATROPIUM BROMIDE [Concomitant]
     Dosage: 0.5 MG, Q6 HOURS PRN
  25. METHOCARBAMOL [Concomitant]
     Indication: PRODUCT USED FOR UNKNOWN INDICATION
     Dosage: 500 MG, Q8 HOURS
     Route: 048
  26. SENNA [Concomitant]
     Indication: CONSTIPATION
     Dosage: 1 DF, PRN
     Route: 048
  27. ZOFRAN [Concomitant]
     Indication: NAUSEA
     Dosage: 8 MG, Q8 HOURS, PRN
     Route: 048
  28. AZITHROMYCIN [Concomitant]
     Indication: PRODUCT USED FOR UNKNOWN INDICATION
     Dosage: 500 MG, UID/QD
     Route: 042
  29. CHERATUSSIN AC [Concomitant]
     Indication: COUGH
     Dosage: 15 ML, Q6 HOURS, PRN
  30. METHYLPREDNISOLONE SODIUM SUCCINATE [Concomitant]
     Dosage: 50 MG, Q6 HOURS
     Route: 042
  31. ERLOTINIB HYDROCHLORIDE [Suspect]
     Dosage: 150 MG, UID/QD
     Route: 048
  32. GUAIFENESIN [Concomitant]
     Indication: COUGH
     Dosage: 300 MG, Q6 HOURS, PRN
     Route: 048
  33. CERUMENEX [Concomitant]
     Indication: CERUMEN IMPACTION
     Dosage: 1 DROPS, PRN
     Route: 065
  34. DEXTROMETHORPHAN W/GUAIFENESIN [Concomitant]
     Indication: COUGH
     Dosage: 15 ML, Q6 HOURS
     Route: 048
  35. LOVAZA [Concomitant]
     Indication: VITAMIN SUPPLEMENTATION
     Dosage: 1000 MG, BID
     Route: 048
  36. SODIUM CHLORIDE [Concomitant]
     Dosage: 10 ML, Q8 HOURS
     Route: 042
  37. ERLOTINIB HYDROCHLORIDE [Suspect]
     Indication: NON-SMALL CELL LUNG CANCER METASTATIC
     Dosage: 150 MG, UID/QD
     Route: 048
     Dates: start: 20110514, end: 20111130
  38. DASATINIB [Suspect]
     Indication: NON-SMALL CELL LUNG CANCER METASTATIC
     Dosage: 50 MG, UID/QD
     Route: 048
     Dates: start: 20110514, end: 20111129
  39. CALCIUM ACETATE [Concomitant]
     Indication: MINERAL SUPPLEMENTATION
     Dosage: UNK
     Route: 048
  40. IBUPROFEN (ADVIL) [Concomitant]
     Indication: MUSCULOSKELETAL STIFFNESS
     Dosage: 200 MG, Q6 HOURS
     Route: 048
  41. MULTI-VITAMIN [Concomitant]
     Indication: VITAMIN SUPPLEMENTATION
     Dosage: 1 DF, UID/QD
     Route: 048
  42. NASONEX [Concomitant]
     Dosage: 2 DF, BID
     Route: 045
  43. SODIUM CHLORIDE [Concomitant]
     Indication: PRODUCT USED FOR UNKNOWN INDICATION
     Dosage: 10 ML, Q6 HOURS
     Route: 042
  44. SODIUM CHLORIDE [Concomitant]
     Dosage: 10 ML, Q4 HOURS, PRN
     Route: 042
  45. FOLIC ACID [Concomitant]
     Indication: VITAMIN SUPPLEMENTATION
     Dosage: 1 MG, UID/QD
     Route: 048
  46. ATROVENT [Concomitant]
     Indication: DYSPNOEA
     Dosage: 0.5 MG, Q6 HOURS
     Route: 055
  47. LOTENSIN HCT [Concomitant]
     Indication: BLOOD PRESSURE
     Dosage: 10/6.75MG - 20/12.5 MG, UID/QD
     Route: 048
  48. BENZONATATE [Concomitant]
     Indication: COUGH
     Dosage: 100 MG, Q6 HOURS, PRN
     Route: 048
  49. IPRATROPIUM BROMIDE [Concomitant]
     Indication: DYSPNOEA
     Dosage: 2.5 ML, Q6 HOURS, PRN
     Route: 055
  50. DENOSUMAB [Concomitant]
     Indication: METASTASES TO BONE
     Dosage: 120 MG, MONTHLY
     Route: 058
  51. OAT BRAN [Concomitant]
     Dosage: 1 DF, UID/QD
     Route: 048
  52. PROTONIX [Concomitant]
     Indication: PROPHYLAXIS
     Dosage: 40 MG, UID/QD
     Route: 048
  53. LOVASTATIN [Concomitant]
     Indication: BLOOD CHOLESTEROL
     Dosage: 20 MG, QHS
     Route: 048
  54. ZOFRAN [Concomitant]
     Indication: VOMITING
  55. MS CONTIN [Concomitant]
     Indication: PAIN
     Route: 048

REACTIONS (13)
  - DEEP VEIN THROMBOSIS [None]
  - RESPIRATORY FAILURE [None]
  - DYSPNOEA [None]
  - ANXIETY [None]
  - RASH [None]
  - PNEUMONIA [None]
  - NEOPLASM MALIGNANT [None]
  - HYPOXIA [None]
  - PULMONARY HYPERTENSION [None]
  - ASTHENIA [None]
  - MALIGNANT PLEURAL EFFUSION [None]
  - PULMONARY EMBOLISM [None]
  - DECREASED APPETITE [None]
